FAERS Safety Report 6842317-7 (Version None)
Quarter: 2010Q3

REPORT INFORMATION
  Report Type: 
  Country: None (occurrence: None)
  Receive Date: 20100714
  Receipt Date: 20070724
  Transmission Date: 20110219
  Serious: No
  Sender: FDA-Public Use
  Company Number: US-PFIZER INC-2007062688

PATIENT
  Sex: Female
  Weight: 83.181 kg

DRUGS (3)
  1. CHANTIX [Suspect]
     Indication: SMOKING CESSATION THERAPY
     Dates: start: 20070616
  2. LEXAPRO [Concomitant]
  3. VITAMINS [Concomitant]

REACTIONS (7)
  - ABNORMAL DREAMS [None]
  - EATING DISORDER [None]
  - GINGIVAL DISORDER [None]
  - NAUSEA [None]
  - ORAL PAIN [None]
  - OROPHARYNGEAL BLISTERING [None]
  - SPEECH DISORDER [None]
